FAERS Safety Report 8220946-6 (Version None)
Quarter: 2012Q1

REPORT INFORMATION
  Report Type: 
  Country: None (occurrence: None)
  Receive Date: 20120320
  Receipt Date: 20120315
  Transmission Date: 20120608
  Serious: Yes (Other)
  Sender: FDA-Public Use
  Company Number: GB-SANOFI-AVENTIS-2012SA018415

PATIENT
  Age: 77 Year
  Sex: Male

DRUGS (8)
  1. OXALIPLATIN [Suspect]
     Route: 065
     Dates: start: 20111228
  2. FLUOROURACIL [Suspect]
     Route: 040
     Dates: start: 20080212
  3. CETUXIMAB [Suspect]
     Route: 065
     Dates: start: 20080212
  4. FLUOROURACIL [Suspect]
     Route: 040
     Dates: start: 20080212
  5. OXALIPLATIN [Suspect]
     Route: 065
     Dates: start: 20080212
  6. CETUXIMAB [Suspect]
     Route: 065
     Dates: start: 20120222
  7. CAPECITABINE [Suspect]
     Route: 065
  8. FLUOROURACIL [Suspect]
     Route: 065
     Dates: start: 20011228

REACTIONS (1)
  - BLOOD MAGNESIUM DECREASED [None]
